FAERS Safety Report 23565611 (Version 1)
Quarter: 2024Q1

REPORT INFORMATION
  Report Type: Spontaneous
  Country: FR (occurrence: FR)
  Receive Date: 20240226
  Receipt Date: 20240226
  Transmission Date: 20240410
  Serious: Yes (Hospitalization)
  Sender: FDA-Public Use
  Company Number: None

PATIENT
  Age: 37 Year
  Sex: Female

DRUGS (3)
  1. TRAMADOL [Suspect]
     Active Substance: TRAMADOL\TRAMADOL HYDROCHLORIDE
     Indication: Back pain
     Dosage: TRAMADOL BASE
     Route: 048
     Dates: start: 202008, end: 202008
  2. NAPROXEN [Concomitant]
     Active Substance: NAPROXEN
     Indication: Back pain
     Route: 048
     Dates: start: 202008, end: 202008
  3. ESOMEPRAZOLE [Concomitant]
     Active Substance: ESOMEPRAZOLE
     Indication: Prophylaxis against gastrointestinal ulcer
     Route: 048
     Dates: start: 202008, end: 202008

REACTIONS (3)
  - Muscle spasms [Recovered/Resolved]
  - Laryngeal oedema [Recovered/Resolved]
  - Dyspnoea [Recovered/Resolved]

NARRATIVE: CASE EVENT DATE: 20200801
